FAERS Safety Report 9368924 (Version 1)
Quarter: 2013Q2

REPORT INFORMATION
  Report Type: Spontaneous
  Country: US (occurrence: US)
  Receive Date: 20130626
  Receipt Date: 20130626
  Transmission Date: 20140414
  Serious: No
  Sender: FDA-Public Use
  Company Number: US-ASTRAZENECA-2013SE40885

PATIENT
  Age: 60 Year
  Sex: Male
  Weight: 72.6 kg

DRUGS (6)
  1. BRILINTA [Suspect]
     Indication: STENT PLACEMENT
     Route: 048
     Dates: start: 201212
  2. BRILINTA [Suspect]
     Indication: CARDIAC DISORDER
     Route: 048
     Dates: start: 201212
  3. PLAVIX [Suspect]
     Route: 065
  4. AMLODIPINE [Concomitant]
  5. CARVEDILOL [Concomitant]
  6. DIOVAN [Concomitant]
     Dosage: 320-25 MG DAILY

REACTIONS (4)
  - Pain in extremity [Unknown]
  - Restless legs syndrome [Unknown]
  - Gait disturbance [Unknown]
  - Drug intolerance [Unknown]
